FAERS Safety Report 18600814 (Version 1)
Quarter: 2020Q4

REPORT INFORMATION
  Report Type: Spontaneous
  Country: FR (occurrence: FR)
  Receive Date: 20201210
  Receipt Date: 20201210
  Transmission Date: 20210114
  Serious: Yes (Hospitalization)
  Sender: FDA-Public Use
  Company Number: FR-009507513-2012FRA000297

PATIENT
  Age: 72 Year
  Sex: Female
  Weight: 61 kg

DRUGS (6)
  1. MIANSERIN HYDROCHLORIDE [Concomitant]
     Active Substance: MIANSERIN HYDROCHLORIDE
  2. BROMAZEPAM [Concomitant]
     Active Substance: BROMAZEPAM
  3. TAHOR [Concomitant]
     Active Substance: ATORVASTATIN CALCIUM
  4. VELMETIA [Suspect]
     Active Substance: METFORMIN\SITAGLIPTIN
     Indication: DIABETES MELLITUS
     Route: 048
     Dates: end: 20201106
  5. NOVO-NORM [Concomitant]
     Active Substance: REPAGLINIDE
  6. BISOCE [Concomitant]
     Active Substance: BISOPROLOL

REACTIONS (4)
  - Acute kidney injury [Recovered/Resolved]
  - Overdose [Recovered/Resolved]
  - Lactic acidosis [Recovered/Resolved]
  - Metabolic acidosis [Recovered/Resolved]

NARRATIVE: CASE EVENT DATE: 20201106
